FAERS Safety Report 18673760 (Version 5)
Quarter: 2022Q3

REPORT INFORMATION
  Report Type: Spontaneous
  Country: GB (occurrence: GB)
  Receive Date: 20201229
  Receipt Date: 20220812
  Transmission Date: 20221026
  Serious: Yes (Hospitalization, Other)
  Sender: FDA-Public Use
  Company Number: GB-EMA-DD-20201221-KUMARVN_P-095547

PATIENT

DRUGS (3)
  1. PREDNISOLONE [Suspect]
     Active Substance: PREDNISOLONE
     Indication: Immunosuppressant drug therapy
     Dosage: 5 MG, QD
  2. PREDNISOLONE [Suspect]
     Active Substance: PREDNISOLONE
     Indication: Sarcoidosis
  3. VORICONAZOLE [Suspect]
     Active Substance: VORICONAZOLE
     Indication: Bronchopulmonary aspergillosis
     Dosage: DURATION OF VORICONAZOLE THERAPY: 4 Y 7 M (WITH 3 M INTERRUPTION)

REACTIONS (2)
  - Squamous cell carcinoma of skin [Recovered/Resolved]
  - Photosensitivity reaction [Recovered/Resolved]
